FAERS Safety Report 18592891 (Version 1)
Quarter: 2020Q4

REPORT INFORMATION
  Report Type: Spontaneous
  Country: TR (occurrence: TR)
  Receive Date: 20201208
  Receipt Date: 20201208
  Transmission Date: 20210114
  Serious: Yes (Hospitalization)
  Sender: FDA-Public Use
  Company Number: TR-BAUSCH-BL-2020-034984

PATIENT
  Age: 12 Year
  Sex: Female

DRUGS (2)
  1. SALBUTAMOL [Suspect]
     Active Substance: ALBUTEROL
     Dosage: SECOND DAY: USED THREE PUFFS OVER 20 MINUTES IN THE MORNING
     Route: 055
  2. SALBUTAMOL [Suspect]
     Active Substance: ALBUTEROL
     Indication: ASTHMA
     Dosage: TWO PUFFS THRICE A DAY, ON THE FIRST DAY
     Route: 055

REACTIONS (3)
  - Angina pectoris [Recovering/Resolving]
  - Myocardial infarction [Recovering/Resolving]
  - Myocardial ischaemia [Recovering/Resolving]
